FAERS Safety Report 8983927 (Version 2)
Quarter: 2013Q2

REPORT INFORMATION
  Report Type: Spontaneous
  Country: US (occurrence: None)
  Receive Date: 20120508
  Receipt Date: 20121107
  Transmission Date: 20140414
  Serious: No
  Sender: FDA-Public Use
  Company Number: 2012HGS-003343

PATIENT
  Sex: Male
  Weight: 175 kg

DRUGS (13)
  1. BENLYSTA [Suspect]
     Indication: SYSTEMIC LUPUS ERYTHEMATOSUS
     Dates: start: 20120209
  2. PLAQUENIL (HYDROXYCHLOROQUINE SULFATE (HYDROXYCHLOROQUINE SULFATE) [Concomitant]
  3. NEXIUM (ESOMEPRAZOLE MAGNESIUM) [Concomitant]
  4. FLOMAX (MORNIFLUMATE) [Concomitant]
  5. MULTIVITAMIN (VIGRAN) (ERGOCALCIFEROL, ASCORBIC ACID, PYRIDOXINE HYDROCHLORIDE,, THIAMINE HYDROCHLORIDE, RETINOL, RIBOFLAVIN, NICOTINAMIDE, CALCIUM PANTOTHENATE) [Concomitant]
  6. PRAVASTATIN (PRAVASTATIN) [Concomitant]
  7. VITAMIN D (ERGOCALCIFEEROL) [Concomitant]
  8. CALCIUM (CALCIUM) [Concomitant]
  9. BROMELAIN (BROMELAIN) [Concomitant]
  10. VITAMIN C [Concomitant]
  11. FISH OIL (FISH OIL) [Concomitant]
  12. TURMERIC (CURCUMA LONGA RHIZOME) [Concomitant]
  13. FLOMAX (MORNIFLUMATE) (MORNIFLUMATE) [Concomitant]

REACTIONS (4)
  - Increased upper airway secretion [None]
  - Rhinorrhoea [None]
  - Productive cough [None]
  - Nasopharyngitis [None]
